FAERS Safety Report 12141154 (Version 1)
Quarter: 2016Q1

REPORT INFORMATION
  Report Type: Spontaneous
  Country: US (occurrence: US)
  Receive Date: 20160303
  Receipt Date: 20160303
  Transmission Date: 20160526
  Serious: No
  Sender: FDA-Public Use
  Company Number: US-ELI_LILLY_AND_COMPANY-US201602001771

PATIENT
  Age: 60 Year
  Sex: Female

DRUGS (7)
  1. HUMALOG [Suspect]
     Active Substance: INSULIN LISPRO
     Indication: BLOOD GLUCOSE ABNORMAL
     Dosage: UNK UNK, TID
     Route: 065
     Dates: end: 201512
  2. HUMULIN R [Suspect]
     Active Substance: INSULIN HUMAN
     Indication: TYPE 2 DIABETES MELLITUS
     Dosage: UNK UNK, UNKNOWN
     Route: 065
     Dates: start: 201512
  3. HUMULIN R [Suspect]
     Active Substance: INSULIN HUMAN
     Dosage: 125 U, BID
     Route: 065
  4. PREDNISONE. [Suspect]
     Active Substance: PREDNISONE
     Indication: SINUSITIS
     Dosage: UNK, UNKNOWN
     Route: 065
     Dates: start: 201510
  5. PREDNISONE. [Suspect]
     Active Substance: PREDNISONE
     Indication: DYSPNOEA
  6. LEVEMIR [Concomitant]
     Active Substance: INSULIN DETEMIR
     Indication: BLOOD GLUCOSE ABNORMAL
  7. PREDNISONE. [Suspect]
     Active Substance: PREDNISONE
     Indication: COUGH

REACTIONS (13)
  - Pneumonia [Unknown]
  - Blood glucose decreased [Unknown]
  - Pruritus [Recovered/Resolved]
  - Sinusitis [Not Recovered/Not Resolved]
  - Localised oedema [Recovered/Resolved]
  - Incorrect dose administered [Unknown]
  - Blood glucose increased [Unknown]
  - Diarrhoea [Recovered/Resolved]
  - Injection site mass [Unknown]
  - Vomiting [Recovered/Resolved]
  - Oedema peripheral [Recovered/Resolved]
  - Nausea [Recovered/Resolved]
  - Incorrect drug administration duration [Unknown]

NARRATIVE: CASE EVENT DATE: 201510
